FAERS Safety Report 18267226 (Version 1)
Quarter: 2020Q3

REPORT INFORMATION
  Report Type: Spontaneous
  Country: US (occurrence: US)
  Receive Date: 20200915
  Receipt Date: 20200915
  Transmission Date: 20201103
  Serious: Yes (Hospitalization)
  Sender: FDA-Public Use
  Company Number: US-MICRO LABS LIMITED-ML2020-02652

PATIENT
  Age: 89 Year
  Sex: Female

DRUGS (3)
  1. VERAPAMIL HYDROCHLORIDE. [Suspect]
     Active Substance: VERAPAMIL HYDROCHLORIDE
     Indication: HYPERTENSION
  2. VERAPAMIL HYDROCHLORIDE. [Suspect]
     Active Substance: VERAPAMIL HYDROCHLORIDE
     Dosage: 1 MONTH EARLIER (AT DISCHARGE), AN INCREASE IN HER VERAPAMIL DOSE TO 280 MG DAILY FROM 240 MG DAILY.
  3. MILK OF MAGNESIA [Suspect]
     Active Substance: MAGNESIUM HYDROXIDE
     Indication: CONSTIPATION
     Dosage: RECENTLY SHE HAD INCREASED THE USE OF MAGNESIUM HYDROXIDE

REACTIONS (2)
  - Nodal arrhythmia [Recovered/Resolved]
  - Drug interaction [Unknown]
